FAERS Safety Report 9543904 (Version 1)
Quarter: 2013Q3

REPORT INFORMATION
  Report Type: Spontaneous
  Country: BR (occurrence: BR)
  Receive Date: 20130923
  Receipt Date: 20130923
  Transmission Date: 20140515
  Serious: Yes (Other)
  Sender: FDA-Public Use
  Company Number: BR-009507513-1210BRA000734

PATIENT
  Sex: Female
  Weight: 60 kg

DRUGS (2)
  1. MERCILON [Suspect]
     Indication: CONTRACEPTION
     Dosage: UNK
     Route: 048
     Dates: start: 2002, end: 2007
  2. MERCILON [Suspect]
     Indication: ENDOMETRIOSIS
     Dosage: UNK, QD
     Route: 048
     Dates: start: 2007

REACTIONS (4)
  - Endometriosis [Unknown]
  - Surgery [Unknown]
  - Off label use [Unknown]
  - Drug administration error [Unknown]
